FAERS Safety Report 9912072 (Version 1)
Quarter: 2014Q1

REPORT INFORMATION
  Report Type: Spontaneous
  Country: US (occurrence: US)
  Receive Date: 20140219
  Receipt Date: 20140219
  Transmission Date: 20141002
  Serious: Yes (Hospitalization)
  Sender: FDA-Public Use
  Company Number: US-MYLANLABS-2014S1003029

PATIENT
  Age: 61 Year
  Sex: Female

DRUGS (1)
  1. GABAPENTIN [Suspect]
     Route: 065

REACTIONS (2)
  - Neurotoxicity [Recovering/Resolving]
  - Diabetic ketoacidosis [Recovering/Resolving]
